FAERS Safety Report 5821581-7 (Version None)
Quarter: 2008Q3

REPORT INFORMATION
  Report Type: 
  Country: None (occurrence: None)
  Receive Date: 20080724
  Receipt Date: 20080715
  Transmission Date: 20090109
  Serious: Yes (Other)
  Sender: FDA-Public Use
  Company Number: PHHY2008AU09207

PATIENT
  Sex: Male

DRUGS (1)
  1. ZOMETA [Suspect]
     Indication: METASTASES TO PROSTATE
     Dosage: 4 MG, QMO
     Route: 042
     Dates: start: 20080415

REACTIONS (2)
  - HYPOAESTHESIA ORAL [None]
  - NUMB CHIN SYNDROME [None]
